FAERS Safety Report 8280786-9 (Version None)
Quarter: 2012Q2

REPORT INFORMATION
  Report Type: 
  Country: None (occurrence: None)
  Receive Date: 20120412
  Receipt Date: 20120330
  Transmission Date: 20120825
  Serious: Yes (Other)
  Sender: FDA-Public Use
  Company Number: KR-ABBOTT-08P-090-0494070-00

PATIENT
  Age: 60 Year
  Sex: Male

DRUGS (7)
  1. RIFAMPICIN [Concomitant]
     Indication: LATENT TUBERCULOSIS
     Dates: start: 20071001, end: 20080128
  2. HUMIRA [Suspect]
     Dates: start: 20071203
  3. SULFASALAZINE [Concomitant]
     Indication: RHEUMATOID ARTHRITIS
     Route: 048
  4. MELOXICAM [Concomitant]
     Indication: ANALGESIC THERAPY
  5. HUMIRA [Suspect]
     Indication: ANKYLOSING SPONDYLITIS
     Dates: start: 20071102, end: 20071116
  6. MELOXICAM [Concomitant]
     Indication: ANTIINFLAMMATORY THERAPY
     Route: 048
  7. SULFASALAZINE [Concomitant]
     Indication: PROPHYLAXIS

REACTIONS (2)
  - ABDOMINAL PAIN [None]
  - BENIGN SALIVARY GLAND NEOPLASM [None]
